FAERS Safety Report 15051101 (Version 2)
Quarter: 2020Q1

REPORT INFORMATION
  Report Type: Report from Study
  Country: FR (occurrence: FR)
  Receive Date: 20180622
  Receipt Date: 20200211
  Transmission Date: 20200409
  Serious: Yes (Hospitalization)
  Sender: FDA-Public Use
  Company Number: FR-PFIZER INC-2018071923

PATIENT
  Age: 74 Year
  Sex: Male
  Weight: 88 kg

DRUGS (8)
  1. INLYTA [Suspect]
     Active Substance: AXITINIB
     Indication: RENAL CELL CARCINOMA
     Dosage: 3 MG, 2X/DAY
     Route: 048
     Dates: start: 20170612
  2. AMLOR [Concomitant]
     Active Substance: AMLODIPINE BESYLATE
     Indication: HYPERTENSION
     Dosage: UNK
     Dates: start: 20170706
  3. AMAREL [Concomitant]
     Active Substance: GLIMEPIRIDE
     Indication: TYPE 2 DIABETES MELLITUS
     Dosage: UNK
     Dates: start: 2007
  4. AVELUMAB [Suspect]
     Active Substance: AVELUMAB
     Indication: RENAL CELL CARCINOMA
     Dosage: 930 MG, CYCLIC, EVERY 2 WEEKS
     Route: 042
     Dates: start: 20170612, end: 20170710
  5. GALVUS [Concomitant]
     Active Substance: VILDAGLIPTIN
     Indication: TYPE 2 DIABETES MELLITUS
     Dosage: UNK
     Dates: start: 2007
  6. KARDEGIC [Concomitant]
     Active Substance: ASPIRIN DL-LYSINE
     Indication: THROMBOSIS PROPHYLAXIS
     Dosage: UNK
     Dates: start: 2007
  7. BIPRETERAX /01421201/ [Concomitant]
     Active Substance: INDAPAMIDE\PERINDOPRIL ERBUMINE
     Indication: HYPERTENSION
     Dosage: UNK
     Dates: start: 2007
  8. TAHOR [Concomitant]
     Active Substance: ATORVASTATIN CALCIUM
     Indication: TYPE 2 DIABETES MELLITUS
     Dosage: UNK
     Dates: start: 2007

REACTIONS (1)
  - Irregular sleep wake rhythm disorder [Recovered/Resolved]

NARRATIVE: CASE EVENT DATE: 20180130
